FAERS Safety Report 10346907 (Version 1)
Quarter: 2014Q3

REPORT INFORMATION
  Report Type: Spontaneous
  Country: US (occurrence: US)
  Receive Date: 20140729
  Receipt Date: 20140729
  Transmission Date: 20150326
  Serious: Yes (Hospitalization)
  Sender: FDA-Public Use
  Company Number: US-BEH-2014044046

PATIENT
  Age: 38 Year
  Sex: Female
  Weight: 66 kg

DRUGS (14)
  1. ADVAIR HFA [Concomitant]
     Active Substance: FLUTICASONE PROPIONATE\SALMETEROL XINAFOATE
  2. SODIUM CHLORIDE. [Concomitant]
     Active Substance: SODIUM CHLORIDE
  3. OXYGEN. [Concomitant]
     Active Substance: OXYGEN
  4. AMITRIPTYLINE [Concomitant]
     Active Substance: AMITRIPTYLINE
  5. ALBUTEROL. [Concomitant]
     Active Substance: ALBUTEROL
  6. DIPHENHYDRAMINE [Concomitant]
     Active Substance: DIPHENHYDRAMINE
  7. IRON [Concomitant]
     Active Substance: IRON
  8. DUONEB [Concomitant]
     Active Substance: ALBUTEROL SULFATE\IPRATROPIUM BROMIDE
  9. ALBUTEROL. [Concomitant]
     Active Substance: ALBUTEROL
  10. EPIPEN [Concomitant]
     Active Substance: EPINEPHRINE
  11. SPIRIVA [Concomitant]
     Active Substance: TIOTROPIUM BROMIDE MONOHYDRATE
  12. VITAMIN D [Concomitant]
     Active Substance: CHOLECALCIFEROL
  13. LEXAPRO [Concomitant]
     Active Substance: ESCITALOPRAM OXALATE
  14. ZEMAIRA [Suspect]
     Active Substance: .ALPHA.1-PROTEINASE INHIBITOR HUMAN
     Indication: ALPHA-1 ANTI-TRYPSIN DEFICIENCY
     Dosage: MAX RATE 0.08 ML/KG/MIN (5.4 ML/MIN)
     Route: 042

REACTIONS (2)
  - Chronic obstructive pulmonary disease [Unknown]
  - Asthma [Unknown]

NARRATIVE: CASE EVENT DATE: 201407
